FAERS Safety Report 7420466-2 (Version None)
Quarter: 2011Q2

REPORT INFORMATION
  Report Type: 
  Country: None (occurrence: None)
  Receive Date: 20110418
  Receipt Date: 20110412
  Transmission Date: 20111010
  Serious: No
  Sender: FDA-Public Use
  Company Number: US-PFIZER INC-2011080440

PATIENT
  Sex: Female

DRUGS (1)
  1. ALAVERT [Suspect]

REACTIONS (2)
  - SINUS HEADACHE [None]
  - FACIAL PAIN [None]
